FAERS Safety Report 6901204-6 (Version None)
Quarter: 2010Q3

REPORT INFORMATION
  Report Type: 
  Country: None (occurrence: None)
  Receive Date: 20100803
  Receipt Date: 20100726
  Transmission Date: 20110219
  Serious: Yes (Hospitalization)
  Sender: FDA-Public Use
  Company Number: US-BAYER-201029105NA

PATIENT
  Sex: Female

DRUGS (2)
  1. CIPRO [Suspect]
     Indication: DIVERTICULITIS
     Route: 065
  2. FLAGYL [Concomitant]

REACTIONS (2)
  - DRUG HYPERSENSITIVITY [None]
  - YELLOW SKIN [None]
